FAERS Safety Report 4771184-0 (Version None)
Quarter: 2005Q3

REPORT INFORMATION
  Report Type: 
  Country: None (occurrence: None)
  Receive Date: 20050914
  Receipt Date: 20050829
  Transmission Date: 20060218
  Serious: Yes (Life-Threatening, Hospitalization)
  Sender: FDA-Public Use
  Company Number: USA0508106691

PATIENT
  Age: 5 Year
  Sex: Male

DRUGS (1)
  1. STRATTERA [Suspect]

REACTIONS (3)
  - ACCIDENTAL DRUG INTAKE BY CHILD [None]
  - ACCIDENTAL OVERDOSE [None]
  - BRAIN DEATH [None]
